FAERS Safety Report 7525157-5 (Version None)
Quarter: 2011Q2

REPORT INFORMATION
  Report Type: 
  Country: None (occurrence: None)
  Receive Date: 20110602
  Receipt Date: 20110602
  Transmission Date: 20111010
  Serious: Yes (Life-Threatening, Hospitalization)
  Sender: FDA-Public Use
  Company Number: None

PATIENT
  Age: 59 Year
  Sex: Male
  Weight: 68 kg

DRUGS (2)
  1. METOPROLOL [Suspect]
     Indication: ATRIAL FIBRILLATION
     Dosage: 7.5 MG ONCE IV
     Route: 042
     Dates: start: 20110330, end: 20110330
  2. DILTIAZEM [Suspect]
     Indication: ATRIAL FIBRILLATION
     Dosage: 240 MG ONCE PO
     Route: 048
     Dates: start: 20110330, end: 20110330

REACTIONS (7)
  - HYPOTENSION [None]
  - BRADYCARDIA [None]
  - EJECTION FRACTION DECREASED [None]
  - PULSELESS ELECTRICAL ACTIVITY [None]
  - CARDIAC ARREST [None]
  - OXYGEN SATURATION DECREASED [None]
  - OVERDOSE [None]
